FAERS Safety Report 6831986-3 (Version None)
Quarter: 2010Q2

REPORT INFORMATION
  Report Type: 
  Country: None (occurrence: None)
  Receive Date: 20100623
  Receipt Date: 20100611
  Transmission Date: 20101027
  Serious: Yes (Hospitalization)
  Sender: FDA-Public Use
  Company Number: AEUSA201000219

PATIENT

DRUGS (4)
  1. GAMUNEX [Suspect]
     Indication: MYASTHENIA GRAVIS
     Dosage: 35 GM; QOW; IV, 45 GM; QOW; IV, QOW; IV
     Route: 042
     Dates: start: 20100527, end: 20100527
  2. GAMUNEX [Suspect]
     Indication: MYASTHENIA GRAVIS
     Dosage: 35 GM; QOW; IV, 45 GM; QOW; IV, QOW; IV
     Route: 042
     Dates: start: 20091101
  3. GAMUNEX [Suspect]
     Indication: MYASTHENIA GRAVIS
     Dosage: 35 GM; QOW; IV, 45 GM; QOW; IV, QOW; IV
     Route: 042
     Dates: start: 20100610
  4. GAMUNEX [Suspect]

REACTIONS (1)
  - SUBARACHNOID HAEMORRHAGE [None]
